FAERS Safety Report 6903619-9 (Version None)
Quarter: 2010Q3

REPORT INFORMATION
  Report Type: 
  Country: None (occurrence: None)
  Receive Date: 20100803
  Receipt Date: 20081023
  Transmission Date: 20110219
  Serious: No
  Sender: FDA-Public Use
  Company Number: US-PFIZER INC-2008089866

PATIENT
  Sex: Female
  Weight: 73.03 kg

DRUGS (5)
  1. LYRICA [Suspect]
     Indication: PAIN
     Route: 048
     Dates: start: 20060101, end: 20080101
  2. ANTIHYPERTENSIVES [Concomitant]
  3. CYMBALTA [Concomitant]
  4. AMITRIPTYLINE HYDROCHLORIDE [Concomitant]
  5. TRAZODONE [Concomitant]
     Indication: SLEEP DISORDER

REACTIONS (5)
  - BALANCE DISORDER [None]
  - FALL [None]
  - PRURITUS [None]
  - RASH MACULAR [None]
  - TREMOR [None]
